FAERS Safety Report 23132872 (Version 5)
Quarter: 2024Q2

REPORT INFORMATION
  Report Type: Report from Study
  Country: US (occurrence: US)
  Receive Date: 20231101
  Receipt Date: 20240424
  Transmission Date: 20240716
  Serious: Yes (Hospitalization, Other)
  Sender: FDA-Public Use
  Company Number: US-ABBVIE-5473694

PATIENT
  Sex: Male
  Weight: 93.439 kg

DRUGS (2)
  1. HUMIRA [Suspect]
     Active Substance: ADALIMUMAB
     Indication: Psoriasis
     Dosage: CITRATE FREE
     Route: 058
     Dates: start: 20210501, end: 2023
  2. HUMIRA [Suspect]
     Active Substance: ADALIMUMAB
     Dosage: CITRATE FREE
     Route: 058

REACTIONS (4)
  - Basal cell carcinoma [Unknown]
  - Dermatofibrosarcoma protuberans [Unknown]
  - Precancerous cells present [Unknown]
  - Bone disorder [Unknown]

NARRATIVE: CASE EVENT DATE: 20230101
